FAERS Safety Report 21857569 (Version 1)
Quarter: 2023Q1

REPORT INFORMATION
  Report Type: Spontaneous
  Country: US (occurrence: None)
  Receive Date: 20230113
  Receipt Date: 20230113
  Transmission Date: 20230417
  Serious: Yes (Hospitalization, Other)
  Sender: FDA-Public Use
  Company Number: US-VistaPharm, Inc.-VER202212-001042

PATIENT
  Age: 58 Year
  Sex: Female

DRUGS (5)
  1. ACETAMINOPHEN\HYDROCODONE [Suspect]
     Active Substance: ACETAMINOPHEN\HYDROCODONE
     Indication: Fibromyalgia
     Dosage: UNKNOWN
     Route: 048
  2. PANTOPRAZOLE [Concomitant]
     Active Substance: PANTOPRAZOLE
     Indication: Product used for unknown indication
     Dosage: UNKNOWN
     Route: 065
  3. ALBUMIN HUMAN [Concomitant]
     Active Substance: ALBUMIN HUMAN
     Indication: Evidence based treatment
     Dosage: UNKNOWN
     Route: 065
  4. MIDODRINE [Concomitant]
     Active Substance: MIDODRINE
     Indication: Evidence based treatment
     Dosage: UNKNOWN
     Route: 065
  5. OCTREOTIDE [Concomitant]
     Active Substance: OCTREOTIDE
     Indication: Evidence based treatment
     Dosage: UNKNOWN
     Route: 065

REACTIONS (4)
  - Acute kidney injury [Recovering/Resolving]
  - Encephalopathy [Recovering/Resolving]
  - Liver injury [Recovering/Resolving]
  - Toxicity to various agents [Unknown]
